FAERS Safety Report 16051150 (Version 1)
Quarter: 2019Q2

REPORT INFORMATION
  Report Type: Spontaneous
  Country: US (occurrence: US)
  Receive Date: 20190307
  Receipt Date: 20190307
  Transmission Date: 20190711
  Serious: Yes (Disabling, Other)
  Sender: FDA-Public Use
  Company Number: None

PATIENT
  Age: 71 Year
  Sex: Male
  Weight: 101.25 kg

DRUGS (1)
  1. CIPROFLOXACIN HCL 500 MG L.P. [Suspect]
     Active Substance: CIPROFLOXACIN HYDROCHLORIDE
     Indication: URINARY TRACT INFECTION
     Route: 048
     Dates: start: 20180405, end: 20180411

REACTIONS (3)
  - Arthralgia [None]
  - Tendonitis [None]
  - Tendon rupture [None]

NARRATIVE: CASE EVENT DATE: 20180409
